FAERS Safety Report 15623983 (Version 1)
Quarter: 2018Q4

REPORT INFORMATION
  Report Type: Report from Study
  Country: None (occurrence: US)
  Receive Date: 20181116
  Receipt Date: 20181116
  Transmission Date: 20190205
  Serious: Yes (Hospitalization, Other)
  Sender: FDA-Public Use
  Company Number: US-ABBVIE-18S-163-2552702-00

PATIENT
  Age: 65 Year
  Sex: Female

DRUGS (1)
  1. CREON [Suspect]
     Active Substance: PANCRELIPASE AMYLASE\PANCRELIPASE LIPASE\PANCRELIPASE PROTEASE
     Indication: PRODUCT USED FOR UNKNOWN INDICATION
     Route: 048

REACTIONS (35)
  - Pancreatic carcinoma [Unknown]
  - Blood cholesterol increased [Unknown]
  - Gastroenteritis [Unknown]
  - Biopsy liver abnormal [Unknown]
  - Arthritis [Unknown]
  - Intraductal papillary mucinous neoplasm [Unknown]
  - Hypomagnesaemia [Unknown]
  - Insomnia related to another mental condition [Unknown]
  - Enterocutaneous fistula [Unknown]
  - Pancreatic leak [Unknown]
  - Fistula [Unknown]
  - Pancreaticoduodenectomy [Unknown]
  - Hypothyroidism [Unknown]
  - Progesterone receptor assay positive [Unknown]
  - Lymphadenectomy [Unknown]
  - Dysplasia [Unknown]
  - Osteopenia [Unknown]
  - Trigger finger [Unknown]
  - Oestrogen receptor assay positive [Unknown]
  - Human epidermal growth factor receptor negative [Unknown]
  - Breast conserving surgery [Unknown]
  - Surgery [Unknown]
  - Invasive ductal breast carcinoma [Unknown]
  - Cyst [Unknown]
  - Post procedural complication [Unknown]
  - Incisional hernia [Unknown]
  - Gastrooesophageal reflux disease [Unknown]
  - Essential hypertension [Unknown]
  - Abdominal pain [Unknown]
  - Abdominal distension [Unknown]
  - Small intestinal obstruction [Unknown]
  - Abdominal pain [Unknown]
  - Type 2 diabetes mellitus [Unknown]
  - Restless legs syndrome [Unknown]
  - Surgery [Unknown]

NARRATIVE: CASE EVENT DATE: 20150320
